FAERS Safety Report 6990348-9 (Version None)
Quarter: 2010Q3

REPORT INFORMATION
  Report Type: 
  Country: None (occurrence: None)
  Receive Date: 20100916
  Receipt Date: 20100527
  Transmission Date: 20110219
  Serious: Yes (Other)
  Sender: FDA-Public Use
  Company Number: GB-PFIZER INC-2010067171

PATIENT
  Age: 40 Year
  Sex: Male

DRUGS (2)
  1. LYRICA [Suspect]
     Dosage: 200 MG, 2X/DAY
  2. OXYCODONE [Concomitant]

REACTIONS (1)
  - COAGULATION TIME PROLONGED [None]
